FAERS Safety Report 7422337-4 (Version None)
Quarter: 2011Q2

REPORT INFORMATION
  Report Type: 
  Country: None (occurrence: None)
  Receive Date: 20110419
  Receipt Date: 20110407
  Transmission Date: 20111010
  Serious: No
  Sender: FDA-Public Use
  Company Number: US-BIOGENIDEC-2010BI039139

PATIENT
  Age: 32 Year
  Sex: Male

DRUGS (5)
  1. SOLU-CORTEF [Concomitant]
     Indication: PREMEDICATION
     Dates: start: 20110225
  2. TYSABRI [Suspect]
     Indication: MULTIPLE SCLEROSIS
     Route: 042
     Dates: start: 20100927
  3. IBUPROFEN [Concomitant]
     Indication: HEADACHE
  4. SOLU-CORTEF [Concomitant]
     Dates: start: 20110325
  5. ACETAMINOPHEN [Concomitant]
     Indication: PREMEDICATION

REACTIONS (6)
  - PRURITUS [None]
  - HEADACHE [None]
  - RASH PRURITIC [None]
  - CHEST DISCOMFORT [None]
  - DYSPNOEA [None]
  - MIGRAINE [None]
